FAERS Safety Report 6710732-8 (Version None)
Quarter: 2010Q2

REPORT INFORMATION
  Report Type: 
  Country: None (occurrence: None)
  Receive Date: 20100504
  Receipt Date: 20100504
  Transmission Date: 20101027
  Serious: Yes (Other)
  Sender: FDA-Public Use
  Company Number: None

PATIENT
  Age: 37 Year
  Sex: Female
  Weight: 61.2356 kg

DRUGS (1)
  1. PREVACID [Suspect]
     Indication: GASTRITIS
     Dosage: 30 MG DAILY PO
     Route: 048

REACTIONS (3)
  - DIARRHOEA [None]
  - MUSCLE SPASMS [None]
  - TERMINAL INSOMNIA [None]
